FAERS Safety Report 9966775 (Version 1)
Quarter: 2014Q1

REPORT INFORMATION
  Report Type: Report from Study
  Country: US (occurrence: US)
  Receive Date: 20140305
  Receipt Date: 20140305
  Transmission Date: 20141002
  Serious: No
  Sender: FDA-Public Use
  Company Number: US-ABBVIE-13P-163-1122031-00

PATIENT
  Age: 45 Year
  Sex: Female

DRUGS (5)
  1. HUMIRA [Suspect]
     Indication: PSORIATIC ARTHROPATHY
     Dates: start: 201112
  2. LEVAQUIN [Suspect]
     Indication: BRONCHITIS
  3. ALBUTEROL [Suspect]
     Indication: BRONCHITIS
  4. MUCINEX [Suspect]
     Indication: BRONCHITIS
  5. TOPICAL OINTMENTS [Concomitant]
     Indication: PSORIASIS

REACTIONS (4)
  - Dysphonia [Not Recovered/Not Resolved]
  - Aphasia [Not Recovered/Not Resolved]
  - Rash [Not Recovered/Not Resolved]
  - Bronchitis [Not Recovered/Not Resolved]
